FAERS Safety Report 7781477-0 (Version None)
Quarter: 2011Q3

REPORT INFORMATION
  Report Type: 
  Country: None (occurrence: None)
  Receive Date: 20110927
  Receipt Date: 20110922
  Transmission Date: 20111222
  Serious: Yes (Other)
  Sender: FDA-Public Use
  Company Number: US-PFIZER INC-2011226387

PATIENT
  Sex: Female
  Weight: 68 kg

DRUGS (7)
  1. PREMPRO [Suspect]
     Dosage: 0.45/1.5 MG, 1X/DAY
     Route: 048
     Dates: start: 20080101, end: 20110501
  2. INDERAL [Concomitant]
     Indication: HYPERTENSION
     Dosage: UNK
     Dates: start: 19940101
  3. PREMPRO [Suspect]
     Indication: VULVOVAGINAL DRYNESS
     Dosage: UNK
     Route: 048
     Dates: start: 19910101
  4. PREMPRO [Suspect]
     Dosage: 0.3/1.5 MG, 1X/DAY
     Route: 048
     Dates: start: 20110501
  5. AMITRIPTYLINE [Concomitant]
     Indication: SLEEP DISORDER
     Dosage: 100 MG, 1X/DAY
     Dates: start: 19940101
  6. KLONOPIN [Concomitant]
     Indication: ANXIETY
     Dosage: 0.5 MG, 2X/DAY
     Dates: start: 19940101
  7. NEXIUM [Concomitant]
     Indication: HIATUS HERNIA
     Dosage: 40 MG, 1X/DAY
     Dates: start: 20030101

REACTIONS (1)
  - LIVER DISORDER [None]
